FAERS Safety Report 9674215 (Version 3)
Quarter: 2014Q1

REPORT INFORMATION
  Report Type: Spontaneous
  Country: JP (occurrence: JP)
  Receive Date: 20131106
  Receipt Date: 20140121
  Transmission Date: 20141002
  Serious: Yes (Life-Threatening)
  Sender: FDA-Public Use
  Company Number: JP-AMGEN-JPNSP2013077942

PATIENT
  Age: 59 Year
  Sex: Male
  Weight: 54 kg

DRUGS (17)
  1. VECTIBIX [Suspect]
     Indication: RECTAL CANCER
     Dosage: 330 MG, Q2WK
     Route: 041
     Dates: start: 20130415, end: 20130930
  2. TAKEPRON [Concomitant]
     Dosage: 15 MG, QD
     Route: 048
  3. NESP [Concomitant]
     Dosage: 60 MUG, QD
     Route: 058
     Dates: start: 20130819, end: 20130819
  4. IRBETAN [Concomitant]
     Dosage: 100 MG, QD
     Route: 048
  5. SELARA [Concomitant]
     Dosage: 100 MG, QD
     Route: 048
  6. THYRADIN S [Concomitant]
     Dosage: 50 MICROGRAM, QD
     Route: 048
  7. PROCYLIN [Concomitant]
     Dosage: 40 MICROGRAM, TID
     Route: 048
  8. ADALAT CRONO [Concomitant]
     Dosage: 20 MG, BID
     Route: 048
  9. PRIMPERAN [Concomitant]
     Dosage: 10 MG, TID
     Route: 048
  10. LASIX                              /00032601/ [Concomitant]
     Dosage: 40 MG, QD
     Route: 048
  11. LASIX                              /00032601/ [Concomitant]
     Dosage: 20 MG, QD
     Route: 048
     Dates: start: 20130819
  12. ALDOMET                            /00000101/ [Concomitant]
     Dosage: 250 MG, BID
     Route: 048
  13. CRAVIT [Concomitant]
     Dosage: UNK UNK, QID
     Route: 047
  14. FLUMETHOLON [Concomitant]
     Dosage: UNK UNK, QID
     Route: 047
  15. HYALEIN [Concomitant]
     Dosage: UNK UNK, QID
     Route: 047
  16. DICLOD [Concomitant]
     Dosage: UNK UNK, QID
     Route: 047
  17. MYSLEE [Concomitant]
     Dosage: 5 MG, QD
     Route: 048

REACTIONS (1)
  - Drug eruption [Recovering/Resolving]
